FAERS Safety Report 10071235 (Version 1)
Quarter: 2014Q2

REPORT INFORMATION
  Report Type: Spontaneous
  Country: US (occurrence: US)
  Receive Date: 20140410
  Receipt Date: 20140410
  Transmission Date: 20141212
  Serious: No
  Sender: FDA-Public Use
  Company Number: US-009507513-1404USA001662

PATIENT
  Sex: Female

DRUGS (2)
  1. NEXPLANON [Suspect]
     Dosage: 1 ROD EVERY THREE YEARS
     Route: 059
     Dates: start: 2011, end: 20140331
  2. NEXPLANON [Suspect]
     Dosage: 1 ROD EVERY THREE YEARS
     Route: 059
     Dates: start: 20140331

REACTIONS (2)
  - Device kink [Recovered/Resolved]
  - No adverse event [Unknown]
